FAERS Safety Report 9377189 (Version 3)
Quarter: 2013Q3

REPORT INFORMATION
  Report Type: Spontaneous
  Country: US (occurrence: US)
  Receive Date: 20130701
  Receipt Date: 20130822
  Transmission Date: 20140515
  Serious: Yes (Hospitalization, Other)
  Sender: FDA-Public Use
  Company Number: US-PFIZER INC-2013192997

PATIENT
  Age: 59 Year
  Sex: Female
  Weight: 90.7 kg

DRUGS (10)
  1. LYRICA [Suspect]
     Indication: FIBROMYALGIA
     Dosage: 150 MG, 3X/DAY
  2. LYRICA [Suspect]
     Dosage: 150 MG, 4X/DAY
     Dates: end: 201307
  3. GEMFIBROZIL [Concomitant]
     Indication: BLOOD CHOLESTEROL ABNORMAL
     Dosage: 600 MG, 2X/DAY
  4. OMEPRAZOLE [Concomitant]
     Indication: GASTROOESOPHAGEAL REFLUX DISEASE
     Dosage: 20 MG, 2X/DAY
  5. XANAX [Concomitant]
     Indication: NERVOUSNESS
     Dosage: 1 MG, 2X/DAY
  6. BENADRYL [Concomitant]
     Indication: HYPERSENSITIVITY
     Dosage: UNK, AS NEEDED
  7. FLONASE [Concomitant]
     Indication: SINUS CONGESTION
     Dosage: ONE SPRAY IN EACH NOSTRIL
     Route: 045
  8. TYLENOL [Concomitant]
     Indication: PAIN
     Dosage: UNK
  9. ALBUTEROL [Concomitant]
     Dosage: UNK
  10. PRILOSEC [Concomitant]
     Indication: DYSPEPSIA
     Dosage: 20 MG, 2X/DAY

REACTIONS (6)
  - Lower limb fracture [Recovering/Resolving]
  - Intentional drug misuse [Unknown]
  - Amnesia [Recovered/Resolved]
  - Wrist fracture [Recovering/Resolving]
  - Hypersensitivity [Unknown]
  - Pain in extremity [Unknown]
